FAERS Safety Report 4428494-6 (Version None)
Quarter: 2004Q3

REPORT INFORMATION
  Report Type: 
  Country: None (occurrence: None)
  Receive Date: 20040816
  Receipt Date: 20040730
  Transmission Date: 20050211
  Serious: Yes (Other)
  Sender: FDA-Public Use
  Company Number: DSA_24495_2004

PATIENT
  Age: 66 Year
  Sex: Female
  Weight: 70.3075 kg

DRUGS (4)
  1. CARDIZEM [Suspect]
     Indication: HYPERTENSION
     Dosage: DF QD PO
     Route: 048
     Dates: start: 20000101, end: 20000101
  2. CARDIZEM SR [Concomitant]
  3. SYNTHROID [Concomitant]
  4. ZOCOR [Concomitant]

REACTIONS (4)
  - HEART RATE INCREASED [None]
  - HYPOVENTILATION [None]
  - PHARMACEUTICAL PRODUCT COMPLAINT [None]
  - THROAT TIGHTNESS [None]
